FAERS Safety Report 4806085-2 (Version None)
Quarter: 2005Q4

REPORT INFORMATION
  Report Type: 
  Country: None (occurrence: None)
  Receive Date: 20051021
  Receipt Date: 20051010
  Transmission Date: 20060501
  Serious: Yes (Hospitalization)
  Sender: FDA-Public Use
  Company Number: US-ROCHE-420784

PATIENT
  Age: 53 Year
  Sex: Male

DRUGS (2)
  1. PEGASYS [Suspect]
     Dosage: ROUTE REPORTED AS INJECTABLE.
     Route: 050
     Dates: start: 20050827
  2. COPEGUS [Suspect]
     Route: 048
     Dates: start: 20050827

REACTIONS (5)
  - CARDIAC DISORDER [None]
  - CARDIAC INFECTION [None]
  - CARDIAC VALVE DISEASE [None]
  - CHEST PAIN [None]
  - ENDOCARDITIS [None]
